FAERS Safety Report 5236113-4 (Version None)
Quarter: 2007Q1

REPORT INFORMATION
  Report Type: 
  Country: None (occurrence: None)
  Receive Date: 20061208
  Receipt Date: 20060426
  Transmission Date: 20070707
  Serious: Yes (Other)
  Sender: FDA-Public Use
  Company Number: 2006UW07482

PATIENT
  Age: 80 Year
  Sex: Female
  Weight: 91.172 kg

DRUGS (4)
  1. CRESTOR [Suspect]
     Indication: BLOOD CHOLESTEROL INCREASED
  2. SYNTHROID [Concomitant]
  3. MODURETIC 5-50 [Concomitant]
  4. MOBIC [Concomitant]

REACTIONS (3)
  - INSOMNIA [None]
  - NERVOUSNESS [None]
  - VISION BLURRED [None]
